FAERS Safety Report 18371935 (Version 1)
Quarter: 2020Q4

REPORT INFORMATION
  Report Type: Spontaneous
  Country: US (occurrence: US)
  Receive Date: 20201012
  Receipt Date: 20201012
  Transmission Date: 20210114
  Serious: No
  Sender: FDA-Public Use
  Company Number: NVSC2020US268748

PATIENT
  Sex: Female

DRUGS (3)
  1. METHYLPHENIDATE. [Suspect]
     Active Substance: METHYLPHENIDATE
     Dosage: 25 MG (STRENGTH: 25 MG)
     Route: 048
  2. METHYLPHENIDATE. [Suspect]
     Active Substance: METHYLPHENIDATE
     Indication: PRODUCT USED FOR UNKNOWN INDICATION
     Dosage: (STRENGTH: 20 MG)
     Route: 048
  3. METHYLPHENIDATE. [Suspect]
     Active Substance: METHYLPHENIDATE
     Dosage: 30 MG (STRENGTH: 30 MG) AS REPORTED
     Route: 048

REACTIONS (1)
  - Anxiety [Unknown]
